FAERS Safety Report 16105774 (Version 1)
Quarter: 2019Q1

REPORT INFORMATION
  Report Type: Spontaneous
  Country: US (occurrence: US)
  Receive Date: 20190322
  Receipt Date: 20190322
  Transmission Date: 20190418
  Serious: Yes (Hospitalization, Other)
  Sender: FDA-Public Use
  Company Number: US-ASTRAZENECA-2019SE44060

PATIENT
  Sex: Female

DRUGS (1)
  1. LUMOXITI [Suspect]
     Active Substance: MOXETUMOMAB PASUDOTOX-TDFK
     Indication: HAIRY CELL LEUKAEMIA
     Route: 042

REACTIONS (18)
  - Condition aggravated [Unknown]
  - Fatigue [Recovering/Resolving]
  - Renal impairment [Unknown]
  - Asthenia [Recovering/Resolving]
  - Vomiting [Recovering/Resolving]
  - Headache [Recovering/Resolving]
  - Swelling [Recovering/Resolving]
  - Hypoxia [Unknown]
  - Platelet count decreased [Unknown]
  - Pneumonia [Unknown]
  - Intracranial aneurysm [Unknown]
  - Dysphagia [Unknown]
  - Vision blurred [Recovering/Resolving]
  - Haemolytic uraemic syndrome [Unknown]
  - Cough [Recovering/Resolving]
  - Pleural effusion [Unknown]
  - Pyrexia [Recovering/Resolving]
  - Nausea [Recovering/Resolving]
